FAERS Safety Report 6654062-1 (Version None)
Quarter: 2010Q1

REPORT INFORMATION
  Report Type: 
  Country: None (occurrence: None)
  Receive Date: 20100326
  Receipt Date: 20100316
  Transmission Date: 20100710
  Serious: Yes (Hospitalization)
  Sender: FDA-Public Use
  Company Number: PHHY2010MX08966

PATIENT
  Age: 50 Year
  Sex: Female

DRUGS (3)
  1. DIOVAN HCT [Suspect]
     Indication: HYPERTENSION
     Dosage: 1 TABLET (160/12.5 MG) PER DAY
     Route: 048
     Dates: start: 20070325, end: 20100109
  2. DIOVAN HCT [Suspect]
     Dosage: 1 TABLET (160/12.5 MG) PER DAY
     Route: 048
     Dates: start: 20100119
  3. TIBOLONE [Concomitant]
     Indication: MENOPAUSE
     Dosage: UNK

REACTIONS (5)
  - ANAEMIA [None]
  - ENDOMETRIAL HYPERPLASIA [None]
  - HYPOTENSION [None]
  - HYSTERECTOMY [None]
  - VAGINAL HAEMORRHAGE [None]
